FAERS Safety Report 9969631 (Version 2)
Quarter: 2014Q2

REPORT INFORMATION
  Report Type: Spontaneous
  Country: US (occurrence: None)
  Receive Date: 20140130
  Receipt Date: 20140501
  Transmission Date: 20141212
  Serious: No
  Sender: FDA-Public Use
  Company Number: PHEH2013US025678

PATIENT
  Sex: Male

DRUGS (1)
  1. ARCAPTA [Suspect]

REACTIONS (5)
  - Retching [None]
  - Dyspnoea [None]
  - Cough [None]
  - Rhinorrhoea [None]
  - Drug ineffective [None]
